FAERS Safety Report 14160220 (Version 6)
Quarter: 2017Q4

REPORT INFORMATION
  Report Type: Report from Study
  Country: None (occurrence: ES)
  Receive Date: 20171104
  Receipt Date: 20171228
  Transmission Date: 20180321
  Serious: Yes (Hospitalization, Other)
  Sender: FDA-Public Use
  Company Number: ES-ABBVIE-17K-144-2145295-00

PATIENT
  Age: 77 Year
  Sex: Female
  Weight: 65 kg

DRUGS (3)
  1. DUODOPA [Suspect]
     Active Substance: CARBIDOPA\LEVODOPA
     Indication: PARKINSON^S DISEASE
     Route: 050
     Dates: start: 20171024, end: 20171026
  2. DUODOPA [Suspect]
     Active Substance: CARBIDOPA\LEVODOPA
     Route: 050
     Dates: start: 20171027, end: 20171212
  3. DUODOPA [Suspect]
     Active Substance: CARBIDOPA\LEVODOPA
     Indication: PARKINSON^S DISEASE
     Dosage: DOSE INCREASED
     Route: 050
     Dates: start: 20171212

REACTIONS (12)
  - Stoma site infection [Recovered/Resolved]
  - Cellulitis [Unknown]
  - Ileus paralytic [Recovered/Resolved]
  - Stoma site discharge [Recovering/Resolving]
  - Gastrointestinal infection [Recovered/Resolved]
  - Pain [Recovered/Resolved]
  - Stoma site haemorrhage [Recovering/Resolving]
  - Choking sensation [Recovered/Resolved]
  - Gait inability [Recovered/Resolved]
  - Oxygen saturation decreased [Recovered/Resolved]
  - Discoloured vomit [Recovered/Resolved]
  - Urinary tract infection [Unknown]

NARRATIVE: CASE EVENT DATE: 2017
